FAERS Safety Report 6594082-9 (Version None)
Quarter: 2010Q1

REPORT INFORMATION
  Report Type: 
  Country: None (occurrence: None)
  Receive Date: 20100222
  Receipt Date: 20100217
  Transmission Date: 20100710
  Serious: Yes (Hospitalization, Other)
  Sender: FDA-Public Use
  Company Number: GXKR2010DE01931

PATIENT
  Sex: Female

DRUGS (26)
  1. ENAHEXAL (NGX) [Suspect]
     Indication: HYPERTENSION
     Dosage: 5 MG, QD
     Route: 048
     Dates: start: 20070805
  2. ZENTROPIL (NGX) [Suspect]
     Indication: CONVULSION
     Dosage: UNK
     Route: 048
     Dates: start: 20070730
  3. ZOLPIDEM (NGX) [Suspect]
     Indication: SLEEP DISORDER
     Dosage: 5 MG, QD
     Route: 048
     Dates: start: 20070816, end: 20070817
  4. ZOLPIDEM (NGX) [Suspect]
     Dosage: 5 MG, QD
     Route: 048
     Dates: start: 20070819, end: 20070820
  5. GLIBENHEXAL (NGX) [Suspect]
     Indication: DIABETES MELLITUS
     Dosage: 3.5 MG, BID
     Route: 048
     Dates: start: 20070816
  6. ZOPICLONE (NGX) [Suspect]
     Indication: SLEEP DISORDER
     Dosage: 7.5 MG, QD
     Route: 048
     Dates: start: 20070823, end: 20070823
  7. ZOPICLONE (NGX) [Suspect]
     Dosage: 7.5 MG, QD
     Route: 048
     Dates: start: 20070826, end: 20070826
  8. CETIRIZINE (NGX) [Suspect]
     Indication: PRURITUS
     Dosage: 10 MG, QD
     Route: 048
     Dates: start: 20070826, end: 20070827
  9. CETIRIZINE (NGX) [Suspect]
     Dosage: 10 MG, QD
     Route: 048
     Dates: start: 20070829
  10. BENURON [Suspect]
     Indication: PAIN
     Dosage: 1000 MG, QID
     Route: 048
     Dates: start: 20070805, end: 20070808
  11. FRAXIPARIN [Suspect]
     Indication: THROMBOSIS PROPHYLAXIS
     Dosage: UNK
     Route: 058
     Dates: start: 20070730, end: 20070811
  12. FORTECORTIN [Suspect]
     Indication: PROPHYLAXIS
     Dosage: UNK
     Route: 048
     Dates: start: 20070801, end: 20070812
  13. EUGLUCON [Suspect]
     Indication: DIABETES MELLITUS
     Dosage: UNK
     Route: 048
     Dates: start: 20070731, end: 20070815
  14. DIGIMERCK [Suspect]
     Indication: CARDIAC FAILURE
     Dosage: UNK
     Route: 048
     Dates: start: 20070731
  15. PANTOZOL [Suspect]
     Dosage: 40 MG, QD
     Route: 048
     Dates: start: 20070731
  16. CIPROBAY (CIPROFLOXACIN HYDROCHLORIDE) [Suspect]
     Indication: CYSTITIS
     Dosage: 250 MG, BID
     Route: 048
     Dates: start: 20070802
  17. TRAMAL [Suspect]
     Indication: PAIN
     Dosage: UNK
     Route: 048
     Dates: start: 20070812, end: 20070821
  18. TRAMAL [Suspect]
     Dosage: UNK
     Route: 048
     Dates: start: 20070818, end: 20070819
  19. TRAMAL [Suspect]
     Dosage: UNK
     Route: 048
     Dates: start: 20070821, end: 20070822
  20. TRAMAL [Suspect]
     Dosage: UNK
     Route: 048
     Dates: start: 20070826, end: 20070827
  21. MAGNESIUM VERLA TABLET [Suspect]
     Dosage: UNK
     Route: 048
     Dates: start: 20070816, end: 20070821
  22. ATOSIL [Suspect]
     Indication: RESTLESSNESS
     Dosage: UNK
     Route: 048
     Dates: start: 20070826, end: 20070827
  23. VOLTAREN [Suspect]
     Indication: PAIN
     Dosage: UNK
     Route: 048
     Dates: start: 20070831, end: 20070831
  24. AMPHOTERICIN B [Suspect]
     Indication: CANDIDIASIS
     Dosage: UNK
     Route: 048
     Dates: start: 20070901, end: 20070901
  25. BEPANTHEN ^ROCHE^ [Suspect]
     Indication: CANDIDIASIS
     Dosage: UNK
     Route: 002
     Dates: start: 20070901, end: 20070901
  26. DECORTIN-H [Suspect]
     Indication: SKIN LESION
     Dosage: 100 UNK, UNK
     Route: 048
     Dates: start: 20070901

REACTIONS (6)
  - ANAL EROSION [None]
  - BLISTER [None]
  - MUCOSAL EROSION [None]
  - ORAL MUCOSA EROSION [None]
  - SKIN DISCOLOURATION [None]
  - STEVENS-JOHNSON SYNDROME [None]
